FAERS Safety Report 6038392-2 (Version None)
Quarter: 2009Q1

REPORT INFORMATION
  Report Type: 
  Country: None (occurrence: None)
  Receive Date: 20090115
  Receipt Date: 20081222
  Transmission Date: 20090719
  Serious: No
  Sender: FDA-Public Use
  Company Number: US-BAYER-200814976BCC

PATIENT
  Age: 67 Year
  Sex: Male

DRUGS (6)
  1. ALEVE (CAPLET) [Suspect]
     Indication: ARTHRALGIA
  2. LIPITOR [Concomitant]
  3. MULTI-VITAMIN [Concomitant]
  4. FOLIC ACID [Concomitant]
  5. FISH OIL [Concomitant]
  6. CO Q10 [Concomitant]

REACTIONS (1)
  - DYSPEPSIA [None]
